FAERS Safety Report 4782364-2 (Version None)
Quarter: 2005Q3

REPORT INFORMATION
  Report Type: 
  Country: None (occurrence: None)
  Receive Date: 20050914
  Receipt Date: 20050706
  Transmission Date: 20060218
  Serious: Yes (Other)
  Sender: FDA-Public Use
  Company Number: 163-20785-05070138

PATIENT
  Sex: 0

DRUGS (6)
  1. THALOMID [Suspect]
     Indication: MULTIPLE MYELOMA
     Dosage: 200-400 MG, INDUCTION PHASE: QD, STARTING ON DAY 4, ORAL; SEE IMAGE
     Route: 048
     Dates: end: 20040101
  2. THALOMID [Suspect]
     Indication: MULTIPLE MYELOMA
     Dosage: 200-400 MG, INDUCTION PHASE: QD, STARTING ON DAY 4, ORAL; SEE IMAGE
     Route: 048
     Dates: start: 20030329
  3. GENASENSE [Suspect]
     Indication: MULTIPLE MYELOMA
     Dosage: 7 MG/KG/DAY, INDUCTION PHASE: D 1-7, 22-28, AND 43-49, INTRAVENOUS DRIP; SEE IMAGE
     Route: 041
     Dates: end: 20040101
  4. GENASENSE [Suspect]
     Indication: MULTIPLE MYELOMA
     Dosage: 7 MG/KG/DAY, INDUCTION PHASE: D 1-7, 22-28, AND 43-49, INTRAVENOUS DRIP; SEE IMAGE
     Route: 041
     Dates: start: 20030326
  5. DEXAMETHASONE [Suspect]
     Dosage: 40 MG, INDUCTION PHASE: D 4-7, 25-28, AND 46-49, ORAL; SEE IMAGE
     Route: 048
     Dates: end: 20040101
  6. DEXAMETHASONE [Suspect]
     Dosage: 40 MG, INDUCTION PHASE: D 4-7, 25-28, AND 46-49, ORAL; SEE IMAGE
     Route: 048
     Dates: start: 20030329

REACTIONS (1)
  - HYPERGLYCAEMIA [None]
